FAERS Safety Report 4578216-3 (Version None)
Quarter: 2005Q1

REPORT INFORMATION
  Report Type: 
  Country: None (occurrence: None)
  Receive Date: 20050127
  Receipt Date: 20040902
  Transmission Date: 20050727
  Serious: No
  Sender: FDA-Public Use
  Company Number: USA040977253

PATIENT
  Age: 50 Year
  Sex: Female

DRUGS (3)
  1. STRATTERA [Suspect]
     Indication: ATTENTION DEFICIT/HYPERACTIVITY DISORDER
     Dosage: 60 MG DAY
     Dates: start: 20040801
  2. PAXIL [Concomitant]
  3. HORMONE REPLACEMENT THERAPY [Concomitant]

REACTIONS (5)
  - ABDOMINAL PAIN UPPER [None]
  - DRY MOUTH [None]
  - INITIAL INSOMNIA [None]
  - PARAESTHESIA [None]
  - THIRST [None]
